FAERS Safety Report 9461453 (Version 1)
Quarter: 2013Q3

REPORT INFORMATION
  Report Type: Report from Study
  Country: JP (occurrence: JP)
  Receive Date: 20130816
  Receipt Date: 20130816
  Transmission Date: 20140515
  Serious: Yes (Other)
  Sender: FDA-Public Use
  Company Number: PHHY2012JP069163

PATIENT
  Age: 45 Year
  Sex: Female

DRUGS (7)
  1. FTY 720 [Suspect]
     Indication: MULTIPLE SCLEROSIS
     Dosage: 0.5 MG, QD
     Route: 048
     Dates: start: 20120619, end: 20120815
  2. TEGRETOL [Suspect]
     Indication: PROPHYLAXIS
     Dosage: 300 MG, UNK
     Route: 048
     Dates: start: 20070509, end: 20120705
  3. TEGRETOL [Suspect]
     Indication: MULTIPLE SCLEROSIS
  4. TRYPTANOL [Concomitant]
     Dosage: 10 MG, UNK
     Route: 048
     Dates: start: 20080917
  5. RIVOTRIL [Concomitant]
     Dosage: 1.5 MG, UNK
     Route: 048
     Dates: start: 20120208
  6. PARIET [Concomitant]
     Dosage: 10 MG, UNK
     Route: 048
     Dates: start: 20120608
  7. MYSLEE [Concomitant]
     Dosage: 10 MG, UNK
     Route: 048
     Dates: start: 20080806

REACTIONS (5)
  - Hepatic enzyme increased [Recovering/Resolving]
  - Alanine aminotransferase increased [Recovering/Resolving]
  - Aspartate aminotransferase increased [Recovering/Resolving]
  - Gamma-glutamyltransferase increased [Recovered/Resolved]
  - Lymphocyte count decreased [Recovered/Resolved]
